FAERS Safety Report 8636912 (Version 2)
Quarter: 2012Q4

REPORT INFORMATION
  Report Type: 
  Country: US (occurrence: US)
  Receive Date: 20120626
  Receipt Date: 20120905
  Transmission Date: 20130627
  Serious: Yes (Other)
  Sender: FDA-Public Use
  Company Number: US-TEVA-344067USA

PATIENT
  Age: 34 Year
  Sex: Male

DRUGS (1)
  1. COPAXONE [Suspect]
     Indication: MULTIPLE SCLEROSIS
     Dates: start: 20120105

REACTIONS (7)
  - Immediate post-injection reaction [Unknown]
  - Blindness [Unknown]
  - Cardiac arrest [Unknown]
  - Convulsion [Unknown]
  - Nervous system disorder [Unknown]
  - Blood potassium decreased [Unknown]
  - Myocardial infarction [Unknown]
